FAERS Safety Report 6332359-2 (Version None)
Quarter: 2009Q3

REPORT INFORMATION
  Report Type: 
  Country: None (occurrence: None)
  Receive Date: 20090828
  Receipt Date: 20090825
  Transmission Date: 20100115
  Serious: Yes (Other)
  Sender: FDA-Public Use
  Company Number: US-TEVA-199565USA

PATIENT
  Sex: Female

DRUGS (2)
  1. ALENDRONAT SODIUM, TABLETS, 5MG, 10MG, 40MG, 35MG, 70MG [Suspect]
     Indication: OSTEOPOROSIS
     Dates: start: 20090329
  2. LEVOTHYROXINE [Concomitant]

REACTIONS (7)
  - ARTHRALGIA [None]
  - BONE PAIN [None]
  - DEPRESSION [None]
  - GASTROOESOPHAGEAL REFLUX DISEASE [None]
  - MOVEMENT DISORDER [None]
  - MYALGIA [None]
  - SUICIDAL IDEATION [None]
